FAERS Safety Report 8826580 (Version 2)
Quarter: 2012Q4

REPORT INFORMATION
  Report Type: 
  Country: DE (occurrence: DE)
  Receive Date: 20121005
  Receipt Date: 20121017
  Transmission Date: 20130627
  Serious: Yes (Congenital Anomaly)
  Sender: FDA-Public Use
  Company Number: DE-TEVA-361664GER

PATIENT
  Age: 0 Year

DRUGS (1)
  1. COPAXONE [Suspect]
     Route: 064

REACTIONS (1)
  - Hip dysplasia [Unknown]
